FAERS Safety Report 16655283 (Version 1)
Quarter: 2019Q3

REPORT INFORMATION
  Report Type: Spontaneous
  Country: US (occurrence: US)
  Receive Date: 20190801
  Receipt Date: 20190801
  Transmission Date: 20191004
  Serious: Yes (Other)
  Sender: FDA-Public Use
  Company Number: US-BRISTOL-MYERS SQUIBB COMPANY-BMS-2019-073471

PATIENT
  Age: 52 Year
  Sex: Female
  Weight: 86.7 kg

DRUGS (1)
  1. IPILIMUMAB [Suspect]
     Active Substance: IPILIMUMAB
     Indication: MALIGNANT MELANOMA
     Dosage: 3 CYCLES
     Route: 065
     Dates: start: 20170706, end: 201710

REACTIONS (2)
  - Colitis [Unknown]
  - Malignant neoplasm progression [Unknown]
